FAERS Safety Report 7273921-2 (Version None)
Quarter: 2011Q1

REPORT INFORMATION
  Report Type: 
  Country: None (occurrence: None)
  Receive Date: 20110203
  Receipt Date: 20110127
  Transmission Date: 20110831
  Serious: Yes (Hospitalization)
  Sender: FDA-Public Use
  Company Number: IE-AMGEN-IRLSP2011005344

PATIENT
  Age: 72 Year
  Sex: Female

DRUGS (5)
  1. METHOTREXATE [Concomitant]
  2. SOTACOR [Concomitant]
  3. LYRICA [Concomitant]
  4. WARFARIN [Concomitant]
  5. ARANESP [Suspect]
     Indication: ANAEMIA
     Dosage: 500 A?G, Q3WK
     Route: 058
     Dates: start: 20100216

REACTIONS (1)
  - FALL [None]
